FAERS Safety Report 4727574-5 (Version None)
Quarter: 2005Q3

REPORT INFORMATION
  Report Type: 
  Country: None (occurrence: None)
  Receive Date: 20050727
  Receipt Date: 20050727
  Transmission Date: 20060218
  Serious: Yes (Hospitalization)
  Sender: FDA-Public Use
  Company Number: None

PATIENT
  Age: 42 Year
  Sex: Male
  Weight: 75.7507 kg

DRUGS (4)
  1. TAXOL [Suspect]
     Dosage: 84 MG X 7; 79 MG X 1
     Dates: start: 20050421, end: 20050607
  2. CARBOPLATIN [Suspect]
     Dosage: 173 MG X 8
     Dates: start: 20050421, end: 20050607
  3. CETUXIMAB  400 MG/M2 WEEKLY [Suspect]
     Dosage: 852 MG X 1
     Dates: start: 20050324
  4. CETUXIMAB 250 MG/M2 [Suspect]
     Dosage: 6811 MG TOTAL CETUXIMAB
     Dates: start: 20050329, end: 20050712

REACTIONS (3)
  - CATHETER RELATED INFECTION [None]
  - LOBAR PNEUMONIA [None]
  - NEUTROPENIA [None]
